FAERS Safety Report 25991044 (Version 1)
Quarter: 2025Q4

REPORT INFORMATION
  Report Type: Spontaneous
  Country: US (occurrence: US)
  Receive Date: 20251103
  Receipt Date: 20251103
  Transmission Date: 20260118
  Serious: Yes (Disabling, Other)
  Sender: NOVO NORDISK
  Company Number: US-NOVOPROD-1551444

PATIENT
  Age: 75 Year
  Sex: Female

DRUGS (1)
  1. NOVOLIN 70/30 [Suspect]
     Active Substance: INSULIN HUMAN
     Indication: Diabetes mellitus
     Dosage: 70 IU, QD (45 IU IN THE MORNING, 25 IU AT NIGHT)
     Dates: start: 2006

REACTIONS (4)
  - Disability [Unknown]
  - Road traffic accident [Unknown]
  - Bronchitis [Unknown]
  - Asthma [Unknown]
